FAERS Safety Report 5812264-8 (Version None)
Quarter: 2008Q3

REPORT INFORMATION
  Report Type: 
  Country: None (occurrence: None)
  Receive Date: 20080711
  Receipt Date: 20080630
  Transmission Date: 20090109
  Serious: Yes (Other)
  Sender: FDA-Public Use
  Company Number: 236270J08USA

PATIENT
  Age: 38 Year
  Sex: Female

DRUGS (4)
  1. REBIF [Suspect]
     Indication: MULTIPLE SCLEROSIS
     Dosage: 44 MCG, 3 IN 1 WEEKS, SUBCUTANEOUS
     Route: 058
     Dates: start: 20071003, end: 20080505
  2. NEXIUM [Concomitant]
  3. METFORMIN HCL [Concomitant]
  4. VICODIN [Concomitant]

REACTIONS (3)
  - FALL [None]
  - LIGAMENT RUPTURE [None]
  - THROMBOSIS [None]
